FAERS Safety Report 9287109 (Version 2)
Quarter: 2013Q4

REPORT INFORMATION
  Report Type: Spontaneous
  Country: US (occurrence: US)
  Receive Date: 20130513
  Receipt Date: 20131125
  Transmission Date: 20140711
  Serious: Yes (Other)
  Sender: FDA-Public Use
  Company Number: US-PFIZER INC-2013144441

PATIENT
  Age: 85 Year
  Sex: Female
  Weight: 136 kg

DRUGS (3)
  1. LIPITOR [Suspect]
     Indication: BLOOD CHOLESTEROL INCREASED
     Dosage: 40 MG, DAILY
  2. DETROL LA [Suspect]
     Indication: INCONTINENCE
     Dosage: 4 MG, DAILY
  3. LASIX [Concomitant]
     Indication: CARDIAC FAILURE CONGESTIVE
     Dosage: UNK

REACTIONS (3)
  - Diabetes mellitus [Unknown]
  - Nausea [Unknown]
  - Malaise [Unknown]
